FAERS Safety Report 16600095 (Version 1)
Quarter: 2019Q3

REPORT INFORMATION
  Report Type: Report from Study
  Country: ES (occurrence: ES)
  Receive Date: 20190719
  Receipt Date: 20190719
  Transmission Date: 20191004
  Serious: Yes (Hospitalization, Other)
  Sender: FDA-Public Use
  Company Number: ES-MYLANLABS-2019M1067064

PATIENT
  Age: 58 Year
  Sex: Female
  Weight: 64.7 kg

DRUGS (8)
  1. CALCIFEDIOL [Concomitant]
     Active Substance: CALCIFEDIOL
     Dosage: VITAMIN D DOSE: 16000UI
     Route: 048
     Dates: start: 20160608
  2. FENTANILO                          /00174601/ [Concomitant]
     Active Substance: FENTANYL
     Indication: RESPIRATORY FAILURE
     Dosage: UNK
     Route: 065
     Dates: start: 20160604
  3. PACLITAXEL. [Suspect]
     Active Substance: PACLITAXEL
     Indication: BREAST CANCER
     Dosage: FORM STRENGTH: 6 MG/ML
     Route: 042
     Dates: start: 20160615
  4. BEVACIZUMAB. [Suspect]
     Active Substance: BEVACIZUMAB
     Indication: BREAST CANCER
     Dosage: FORM STRENGTH:25 MG/ML
     Route: 042
     Dates: start: 20160615
  5. INDACATEROL [Concomitant]
     Active Substance: INDACATEROL
     Dosage: UNK
     Route: 065
     Dates: start: 20150212
  6. DEXAMETASONA                       /00016001/ [Concomitant]
     Active Substance: DEXAMETHASONE
     Dosage: 12 MILLIGRAM, QD
     Route: 048
     Dates: start: 20160604
  7. LORAZEPAM. [Concomitant]
     Active Substance: LORAZEPAM
     Dosage: 1 MILLIGRAM
     Route: 065
     Dates: start: 20160603
  8. METOCLOPRAMIDA                     /00041901/ [Concomitant]
     Active Substance: METOCLOPRAMIDE
     Dosage: 30 MILLIGRAM, QD
     Route: 065
     Dates: start: 20160603

REACTIONS (18)
  - Neuropathy peripheral [Recovered/Resolved]
  - Upper respiratory tract infection [Not Recovered/Not Resolved]
  - Deep vein thrombosis [Recovered/Resolved]
  - Vomiting [Recovered/Resolved]
  - Rectal haemorrhage [Recovered/Resolved]
  - Dyspnoea [Recovered/Resolved]
  - Pyrexia [Recovered/Resolved]
  - Subcutaneous abscess [Recovered/Resolved]
  - Gastritis [Recovered/Resolved]
  - Urinary tract infection [Recovered/Resolved]
  - Asthenia [Recovered/Resolved]
  - Abdominal pain upper [Recovered/Resolved]
  - Cough [Recovered/Resolved]
  - Constipation [Recovered/Resolved]
  - Nausea [Recovered/Resolved]
  - General physical health deterioration [Recovered/Resolved]
  - Hypertension [Recovered/Resolved]
  - Hypoalbuminaemia [Recovered/Resolved]

NARRATIVE: CASE EVENT DATE: 20160615
